FAERS Safety Report 14081234 (Version 2)
Quarter: 2017Q4

REPORT INFORMATION
  Report Type: Spontaneous
  Country: GB (occurrence: GB)
  Receive Date: 20171012
  Receipt Date: 20171019
  Transmission Date: 20180321
  Serious: Yes (Other)
  Sender: FDA-Public Use
  Company Number: GB-MYLANLABS-2017M1062884

PATIENT
  Age: 30 Year
  Sex: Female
  Weight: 53 kg

DRUGS (4)
  1. QUETIAPINE. [Suspect]
     Active Substance: QUETIAPINE
     Dosage: 800 MG, UNK
     Route: 048
     Dates: start: 20140312
  2. QUETIAPINE. [Suspect]
     Active Substance: QUETIAPINE
     Indication: BIPOLAR DISORDER
     Dosage: 150 MG, UNK
     Route: 048
     Dates: start: 201512, end: 20151216
  3. LEVOTHYROXINE SODIUM. [Concomitant]
     Active Substance: LEVOTHYROXINE SODIUM
  4. QUETIAPINE. [Suspect]
     Active Substance: QUETIAPINE
     Dosage: REDUCING DOSE PER MONTH
     Route: 048
     Dates: start: 201507

REACTIONS (2)
  - Drug withdrawal syndrome [Unknown]
  - Seizure cluster [Recovered/Resolved]

NARRATIVE: CASE EVENT DATE: 20151204
